FAERS Safety Report 17367131 (Version 4)
Quarter: 2020Q2

REPORT INFORMATION
  Report Type: Spontaneous
  Country: US (occurrence: US)
  Receive Date: 20200204
  Receipt Date: 20200429
  Transmission Date: 20200713
  Serious: Yes (Hospitalization, Other)
  Sender: FDA-Public Use
  Company Number: US-OTSUKA-2020_002536

PATIENT
  Age: 61 Year
  Sex: Female

DRUGS (2)
  1. SAMSCA [Suspect]
     Active Substance: TOLVAPTAN
     Indication: BLOOD ANTIDIURETIC HORMONE ABNORMAL
     Dosage: 30 MG, QD
     Route: 048
     Dates: start: 201911
  2. SAMSCA [Suspect]
     Active Substance: TOLVAPTAN
     Indication: BLOOD SODIUM DECREASED
     Dosage: 15 MG, QD
     Route: 048
     Dates: start: 201911

REACTIONS (12)
  - Blood sodium decreased [Unknown]
  - Spinal pain [Unknown]
  - Soliloquy [Not Recovered/Not Resolved]
  - Back pain [Unknown]
  - Malaise [Unknown]
  - Inability to afford medication [Unknown]
  - Blood sodium decreased [Unknown]
  - Blood pressure decreased [Not Recovered/Not Resolved]
  - Small cell lung cancer metastatic [Not Recovered/Not Resolved]
  - Brain neoplasm [Unknown]
  - Blood sodium decreased [Unknown]
  - Therapy interrupted [Unknown]

NARRATIVE: CASE EVENT DATE: 201912
